FAERS Safety Report 4947879-2 (Version None)
Quarter: 2006Q1

REPORT INFORMATION
  Report Type: 
  Country: None (occurrence: None)
  Receive Date: 20060314
  Receipt Date: 20060307
  Transmission Date: 20060701
  Serious: Yes (Hospitalization)
  Sender: FDA-Public Use
  Company Number: 213779

PATIENT
  Age: 77 Year
  Sex: Female
  Weight: 70 kg

DRUGS (10)
  1. RITUXIMAB (RITUXIMAB) CONC FOR SOLUTION FOR INFUSION [Suspect]
     Indication: CHRONIC LYMPHOCYTIC LEUKAEMIA
     Dosage: 500 MG/M2, INTRAVENOUS
     Route: 042
     Dates: start: 20050308, end: 20050404
  2. ENDOXAN (CYCLOPHOSPHAMIDE) [Suspect]
     Indication: CHRONIC LYMPHOCYTIC LEUKAEMIA
     Dosage: 250 MG/M2, INTRAVENOUS
     Route: 042
     Dates: start: 20050308, end: 20050404
  3. FLUDARABINE [Suspect]
     Indication: CHRONIC LYMPHOCYTIC LEUKAEMIA
     Dosage: 25 MG/M2, INTRAVENOUS
     Route: 042
     Dates: start: 20050308, end: 20050404
  4. ACYCLOVIR [Concomitant]
  5. SULFAMETHOXAZOLE/TRIMETHOPRIM (METHOXAZOLE, TRIMETHOPRIM) [Concomitant]
  6. ALLOPURINOL [Concomitant]
  7. NITROGLICERINA (NITROGLYCERIN) [Concomitant]
  8. HYDROCHLOROTHIAZIDE W AMILORIDE HCL 50/5 (AMILORIDE HYDROCHLORIDE, HYD [Concomitant]
  9. ATENOLOLO (ATENOLOL) [Concomitant]
  10. AMLODIPINE BESYLATE [Concomitant]

REACTIONS (6)
  - ELECTROCARDIOGRAM T WAVE AMPLITUDE DECREASED [None]
  - HAEMOLYTIC ANAEMIA [None]
  - NEUTROPENIA [None]
  - PLATELET COUNT DECREASED [None]
  - PYREXIA [None]
  - WHITE BLOOD CELL COUNT DECREASED [None]
